FAERS Safety Report 7119519-8 (Version None)
Quarter: 2010Q4

REPORT INFORMATION
  Report Type: 
  Country: None (occurrence: None)
  Receive Date: 20101123
  Receipt Date: 20101112
  Transmission Date: 20110411
  Serious: Yes (Death)
  Sender: FDA-Public Use
  Company Number: JP-AMGEN-JPNCT2010003137

PATIENT
  Age: 73 Year
  Sex: Male
  Weight: 53 kg

DRUGS (16)
  1. VECTIBIX [Suspect]
     Indication: COLORECTAL CANCER
     Dosage: UNK UNK, Q2WK
     Route: 041
     Dates: start: 20101019
  2. VECTIBIX [Suspect]
     Route: 041
     Dates: start: 20101019, end: 20101019
  3. OXALIPLATIN [Concomitant]
     Indication: COLORECTAL CANCER
     Dosage: UNK UNK, Q2WK
     Route: 041
     Dates: start: 20101019, end: 20101021
  4. OXALIPLATIN [Concomitant]
     Route: 041
     Dates: start: 20101019, end: 20101021
  5. FLUOROURACIL [Concomitant]
     Indication: COLORECTAL CANCER
     Dosage: UNK UNK, UNK
     Route: 040
     Dates: start: 20101019, end: 20101021
  6. FLUOROURACIL [Concomitant]
     Route: 041
     Dates: start: 20101019
  7. FLUOROURACIL [Concomitant]
     Route: 040
     Dates: start: 20101019, end: 20101021
  8. FLUOROURACIL [Concomitant]
     Route: 041
     Dates: start: 20101019, end: 20101021
  9. CALCIUM LEVOFOLINATE [Concomitant]
     Indication: COLORECTAL CANCER
     Dosage: UNK UNK, UNK
     Route: 041
     Dates: start: 20101019, end: 20101021
  10. CALCIUM LEVOFOLINATE [Concomitant]
     Route: 041
     Dates: start: 20101019, end: 20101021
  11. CORTICOSTEROIDS [Concomitant]
     Indication: PROPHYLAXIS
     Route: 065
  12. ANPEC [Concomitant]
     Route: 042
  13. SEROTONE [Concomitant]
     Route: 042
  14. DECADRON [Concomitant]
     Route: 042
  15. GASTER [Concomitant]
     Route: 042
  16. CHLOR-TRIMETON [Concomitant]
     Route: 042

REACTIONS (1)
  - COLORECTAL CANCER [None]
